FAERS Safety Report 4627079-6 (Version None)
Quarter: 2005Q1

REPORT INFORMATION
  Report Type: 
  Country: None (occurrence: None)
  Receive Date: 20050331
  Receipt Date: 20050317
  Transmission Date: 20050727
  Serious: Yes (Hospitalization)
  Sender: FDA-Public Use
  Company Number: FR-2005-004331

PATIENT
  Age: 82 Year
  Sex: Female

DRUGS (1)
  1. SOTALOL (SOTALOL HYDROCHLORIDE) [Suspect]

REACTIONS (1)
  - SCLERODERMA [None]
